FAERS Safety Report 5007870-7 (Version None)
Quarter: 2006Q2

REPORT INFORMATION
  Report Type: 
  Country: None (occurrence: None)
  Receive Date: 20060403
  Receipt Date: 20050923
  Transmission Date: 20061013
  Serious: Yes (Other)
  Sender: FDA-Public Use
  Company Number: 2005EN000376

PATIENT
  Age: 7 Year
  Sex: Female
  Weight: 24 kg

DRUGS (3)
  1. ONCASPAR [Suspect]
     Indication: ACUTE LYMPHOCYTIC LEUKAEMIA
     Dosage: 2250 ML
     Dates: start: 20050805, end: 20050826
  2. VINCRISTINE [Concomitant]
  3. METHOTREXATE [Concomitant]

REACTIONS (1)
  - ANAPHYLACTIC REACTION [None]
